FAERS Safety Report 5114060-6 (Version None)
Quarter: 2006Q3

REPORT INFORMATION
  Report Type: 
  Country: None (occurrence: None)
  Receive Date: 20060925
  Receipt Date: 20060727
  Transmission Date: 20061208
  Serious: Yes (Other)
  Sender: FDA-Public Use
  Company Number: PHBS2006JP11429

PATIENT
  Age: 83 Year
  Sex: Female
  Weight: 35 kg

DRUGS (6)
  1. TOFRANIL [Suspect]
     Indication: BACK PAIN
     Dosage: 10 MG, QD
     Route: 048
     Dates: start: 20060627, end: 20060717
  2. ELCITONIN [Suspect]
     Indication: OSTEOPOROSIS
     Dosage: 20 IU, QW
     Route: 030
     Dates: start: 20060120, end: 20060209
  3. ELCITONIN [Suspect]
     Dosage: 20 IU, QW
     Route: 042
     Dates: start: 20060612, end: 20060710
  4. BONALON [Concomitant]
     Indication: OSTEOPOROSIS
     Dosage: 5 MG/DAY
     Route: 048
     Dates: start: 20060124
  5. JUZENTAIHOTO [Concomitant]
     Dosage: 3 G, TID
     Route: 048
     Dates: start: 20060202
  6. GLAKAY [Concomitant]
     Indication: OSTEOPOROSIS
     Dosage: 15 MG, TID
     Route: 048
     Dates: start: 20060302

REACTIONS (20)
  - ALANINE AMINOTRANSFERASE INCREASED [None]
  - ANOREXIA [None]
  - ASPARTATE AMINOTRANSFERASE INCREASED [None]
  - BACK PAIN [None]
  - BLOOD ALKALINE PHOSPHATASE INCREASED [None]
  - BLOOD LACTATE DEHYDROGENASE INCREASED [None]
  - BLOOD PRESSURE DECREASED [None]
  - BODY TEMPERATURE DECREASED [None]
  - COUGH [None]
  - DEPRESSION [None]
  - DYSTHYMIC DISORDER [None]
  - EOSINOPHIL COUNT INCREASED [None]
  - HEADACHE [None]
  - HEART RATE INCREASED [None]
  - HEPATITIS FULMINANT [None]
  - HYPERHIDROSIS [None]
  - LIVER DISORDER [None]
  - MALAISE [None]
  - PYREXIA [None]
  - YELLOW SKIN [None]
